FAERS Safety Report 5965220-3 (Version None)
Quarter: 2008Q4

REPORT INFORMATION
  Report Type: 
  Country: None (occurrence: None)
  Receive Date: 20081121
  Receipt Date: 20081121
  Transmission Date: 20090506
  Serious: No
  Sender: FDA-Public Use
  Company Number: None

PATIENT
  Age: 65 Year
  Sex: Female
  Weight: 55.7924 kg

DRUGS (5)
  1. HYDROXYCHLOROQUINE 200MG WATSON [Suspect]
     Indication: RHEUMATOID ARTHRITIS
     Dosage: 200MG 1 @ PO
     Route: 048
     Dates: start: 20080317, end: 20080920
  2. HYDROXYCHLOROQUINE 200MG WATSON [Suspect]
     Indication: SJOGREN'S SYNDROME
     Dosage: 200MG 1 @ PO
     Route: 048
     Dates: start: 20080317, end: 20080920
  3. HYDROXYCHLOROQUINE 200MG WATSON [Suspect]
     Indication: RHEUMATOID ARTHRITIS
     Dosage: 200MG 1 @ PO
     Route: 048
     Dates: start: 20081103, end: 20081120
  4. HYDROXYCHLOROQUINE 200MG WATSON [Suspect]
     Indication: SJOGREN'S SYNDROME
     Dosage: 200MG 1 @ PO
     Route: 048
     Dates: start: 20081103, end: 20081120
  5. HYDROXYCHLOROQUINE 200MG WATSON [Suspect]

REACTIONS (2)
  - GRANULOMA ANNULARE [None]
  - PRURITUS [None]
